FAERS Safety Report 17517185 (Version 1)
Quarter: 2020Q1

REPORT INFORMATION
  Report Type: Spontaneous
  Country: US (occurrence: US)
  Receive Date: 20200307
  Receipt Date: 20200307
  Transmission Date: 20200409
  Serious: Yes (Other)
  Sender: FDA-Public Use
  Company Number: None

PATIENT
  Age: 54 Year
  Sex: Female
  Weight: 54.9 kg

DRUGS (7)
  1. B COMPLEX VITAMIN [Concomitant]
  2. VITAMIN C [Concomitant]
     Active Substance: ASCORBIC ACID
  3. KCL [Concomitant]
     Active Substance: POTASSIUM CHLORIDE
  4. HORMONE REPLACEMENT THERAPY [Concomitant]
     Active Substance: UNSPECIFIED INGREDIENT
  5. MONTELUKAST [Suspect]
     Active Substance: MONTELUKAST SODIUM
     Indication: SEASONAL ALLERGY
     Dates: start: 20180301, end: 20200217
  6. LOSARTAN. [Concomitant]
     Active Substance: LOSARTAN
  7. MONTELUKAST [Suspect]
     Active Substance: MONTELUKAST SODIUM
     Indication: ASTHMA EXERCISE INDUCED
     Dates: start: 20180301, end: 20200217

REACTIONS (1)
  - Tachycardia [None]

NARRATIVE: CASE EVENT DATE: 20200217
